FAERS Safety Report 26010309 (Version 1)
Quarter: 2025Q4

REPORT INFORMATION
  Report Type: Spontaneous
  Country: CN (occurrence: CN)
  Receive Date: 20251107
  Receipt Date: 20251107
  Transmission Date: 20260118
  Serious: Yes (Other)
  Sender: ROCHE
  Company Number: CN-ROCHE-10000426167

PATIENT
  Age: 56 Year

DRUGS (2)
  1. PERTUZUMAB [Suspect]
     Active Substance: PERTUZUMAB
     Indication: HER2 positive breast cancer
     Route: 065
  2. TRASTUZUMAB [Suspect]
     Active Substance: TRASTUZUMAB
     Indication: HER2 positive breast cancer
     Route: 065

REACTIONS (5)
  - Haematotoxicity [Unknown]
  - Gastrointestinal disorder [Unknown]
  - Myelosuppression [Unknown]
  - Breast cancer recurrent [Unknown]
  - Metastasis [Unknown]
